FAERS Safety Report 9805353 (Version 1)
Quarter: 2014Q1

REPORT INFORMATION
  Report Type: Spontaneous
  Country: IT (occurrence: None)
  Receive Date: 20140106
  Receipt Date: 20140106
  Transmission Date: 20141002
  Serious: Yes (Hospitalization)
  Sender: FDA-Public Use
  Company Number: 2013AP009921

PATIENT
  Age: 83 Year
  Sex: Female

DRUGS (14)
  1. LEVOFLOXACIN [Suspect]
     Indication: PNEUMONIA
     Route: 048
     Dates: start: 20130914, end: 20130924
  2. MICARDIS [Concomitant]
  3. KEPPRA [Concomitant]
  4. CATAPRESSAN [Concomitant]
  5. TIKLID [Concomitant]
  6. FOSTER [Concomitant]
  7. ZANEDIP [Concomitant]
  8. LEXOTAN [Concomitant]
  9. ENALAPRIL MALEATE [Concomitant]
  10. ALLOPURINOL [Concomitant]
  11. CEFTRIAXONE SODIUM [Concomitant]
  12. LEVOFLOXACIN [Concomitant]
  13. AMOXICILLIN TRIHYDRATE W/CLAVULANTE POTASSIUM [Concomitant]
  14. AMOXICILLIN [Concomitant]

REACTIONS (1)
  - Acute generalised exanthematous pustulosis [None]
